FAERS Safety Report 23586490 (Version 1)
Quarter: 2024Q1

REPORT INFORMATION
  Report Type: Spontaneous
  Country: US (occurrence: US)
  Receive Date: 20240301
  Receipt Date: 20240301
  Transmission Date: 20240410
  Serious: No
  Sender: FDA-Public Use
  Company Number: US-TRAVERE-2024TVT00205

PATIENT
  Sex: Male

DRUGS (3)
  1. FILSPARI [Suspect]
     Active Substance: SPARSENTAN
     Indication: Chronic kidney disease
     Dosage: DAILY
     Route: 048
     Dates: start: 20240227
  2. FILSPARI [Suspect]
     Active Substance: SPARSENTAN
     Indication: Nephritic syndrome
  3. FILSPARI [Suspect]
     Active Substance: SPARSENTAN
     Indication: Glomerulonephritis proliferative

REACTIONS (1)
  - Product use in unapproved indication [Unknown]
